FAERS Safety Report 8351965-7 (Version None)
Quarter: 2012Q2

REPORT INFORMATION
  Report Type: 
  Country: None (occurrence: None)
  Receive Date: 20120511
  Receipt Date: 20120430
  Transmission Date: 20120825
  Serious: Yes (Death, Hospitalization)
  Sender: FDA-Public Use
  Company Number: ES-ELI_LILLY_AND_COMPANY-ES201205001969

PATIENT
  Sex: Female
  Weight: 50 kg

DRUGS (3)
  1. FORTEO [Suspect]
     Indication: OSTEOPOROSIS
     Dosage: 20 UG, QD
     Route: 058
     Dates: start: 20110607, end: 20120302
  2. BISOPROLOL FUMARATE [Concomitant]
     Route: 048
  3. SINTROM [Concomitant]

REACTIONS (2)
  - DEATH [None]
  - ACUTE MYOCARDIAL INFARCTION [None]
